FAERS Safety Report 7403776-4 (Version None)
Quarter: 2011Q2

REPORT INFORMATION
  Report Type: 
  Country: None (occurrence: None)
  Receive Date: 20110408
  Receipt Date: 20110315
  Transmission Date: 20111010
  Serious: No
  Sender: FDA-Public Use
  Company Number: US-B.I. PHARMACEUTICALS,INC./RIDGEFIELD-2011-BP-08306BP

PATIENT
  Sex: Female

DRUGS (13)
  1. LEVEMIR [Concomitant]
     Indication: DIABETES MELLITUS
  2. METFORMIN [Concomitant]
     Indication: DIABETES MELLITUS
     Dosage: 2000 MG
  3. LOVAZA [Concomitant]
     Indication: BLOOD CHOLESTEROL INCREASED
     Dosage: 100 MG
  4. VITAMIN B-12 [Concomitant]
     Indication: VITAMIN B12 DECREASED
     Route: 060
  5. PRADAXA [Suspect]
     Dosage: 300 MG
     Route: 048
     Dates: start: 20110111
  6. HUMALOG [Concomitant]
     Indication: DIABETES MELLITUS
  7. ZYRTEC [Concomitant]
     Indication: MULTIPLE ALLERGIES
  8. CRESTOR [Concomitant]
     Indication: BLOOD CHOLESTEROL INCREASED
     Dosage: 10 MG
  9. MULTI-VITAMIN [Concomitant]
  10. DIOVAN [Concomitant]
     Indication: PROPHYLAXIS
  11. LASIX [Concomitant]
     Indication: FLUID RETENTION
     Dosage: 40 MG
  12. Q 10 [Concomitant]
     Indication: CARDIAC DISORDER
     Dosage: 100 MG
  13. DIOVAN [Concomitant]
     Indication: HYPERTENSION
     Dosage: 360 MG

REACTIONS (4)
  - ANAEMIA [None]
  - COUGH [None]
  - DYSPEPSIA [None]
  - BLOOD MAGNESIUM DECREASED [None]
